FAERS Safety Report 7297536-5 (Version None)
Quarter: 2011Q1

REPORT INFORMATION
  Report Type: 
  Country: None (occurrence: None)
  Receive Date: 20110216
  Receipt Date: 20110211
  Transmission Date: 20110831
  Serious: Yes (Other)
  Sender: FDA-Public Use
  Company Number: DE-ABBOTT-11P-062-0705127-00

PATIENT
  Sex: Female
  Weight: 80 kg

DRUGS (2)
  1. PREDNISOLONE [Concomitant]
     Indication: PRODUCT USED FOR UNKNOWN INDICATION
  2. HUMIRA [Suspect]
     Indication: CROHN'S DISEASE
     Dosage: FOUR TIMES 40 MG
     Route: 058
     Dates: start: 20110120

REACTIONS (3)
  - RASH PUSTULAR [None]
  - INJECTION SITE REACTION [None]
  - PRURITUS GENERALISED [None]
